FAERS Safety Report 26185743 (Version 1)
Quarter: 2025Q4

REPORT INFORMATION
  Report Type: Spontaneous
  Country: US (occurrence: None)
  Receive Date: 20251219
  Receipt Date: 20251219
  Transmission Date: 20260118
  Serious: Yes (Other)
  Sender: FDA-CTU
  Company Number: None

PATIENT
  Age: 68 Year
  Sex: Male
  Weight: 114.3 kg

DRUGS (3)
  1. OZEMPIC [Suspect]
     Active Substance: SEMAGLUTIDE
  2. OZEMPIC [Suspect]
     Active Substance: SEMAGLUTIDE
  3. DEVICE [Concomitant]
     Active Substance: DEVICE

REACTIONS (2)
  - Optic ischaemic neuropathy [None]
  - Blindness unilateral [None]

NARRATIVE: CASE EVENT DATE: 20250517
